FAERS Safety Report 26205451 (Version 1)
Quarter: 2025Q4

REPORT INFORMATION
  Report Type: Spontaneous
  Country: CN (occurrence: CN)
  Receive Date: 20251228
  Receipt Date: 20251228
  Transmission Date: 20260117
  Serious: Yes (Other)
  Sender: ABBVIE
  Company Number: CN-ABBVIE-6605507

PATIENT
  Age: 58 Year
  Sex: Female

DRUGS (3)
  1. VENCLEXTA [Suspect]
     Active Substance: VENETOCLAX
     Indication: Acute myeloid leukaemia
     Dosage: 400 MILLIGRAM D1-14
     Route: 048
     Dates: start: 20251122, end: 20251205
  2. MITOXANTRONE HYDROCHLORIDE [Suspect]
     Active Substance: MITOXANTRONE HYDROCHLORIDE
     Indication: Acute myeloid leukaemia
     Dosage: 24 MG/ M2 34.56 MG (ROUNDED TO 35 MG) D1?INTRAVENOUS DRIP
     Route: 042
     Dates: start: 20251122, end: 20251124
  3. AZACITIDINE [Suspect]
     Active Substance: AZACITIDINE
     Indication: Acute myeloid leukaemia
     Dosage: 100 MILLIGRAM?75 MG/M2 TOTAL 756 MG (ROUNDED TO 750 MG) 150 MG D1, 100 MG D2-7
     Route: 058
     Dates: start: 20251122, end: 20251128

REACTIONS (1)
  - Myelosuppression [Recovering/Resolving]

NARRATIVE: CASE EVENT DATE: 20251205
